FAERS Safety Report 9376398 (Version 1)
Quarter: 2013Q3

REPORT INFORMATION
  Report Type: Spontaneous
  Country: FR (occurrence: FR)
  Receive Date: 20130701
  Receipt Date: 20130701
  Transmission Date: 20140515
  Serious: Yes (Other)
  Sender: FDA-Public Use
  Company Number: FR-JNJFOC-20130613261

PATIENT
  Sex: Male

DRUGS (1)
  1. XEPLION [Suspect]
     Indication: ABNORMAL BEHAVIOUR
     Dosage: DAY 1
     Route: 030

REACTIONS (3)
  - Delusion [Recovering/Resolving]
  - Confusional state [Recovering/Resolving]
  - Off label use [Unknown]
